FAERS Safety Report 8379440-4 (Version None)
Quarter: 2012Q2

REPORT INFORMATION
  Report Type: 
  Country: None (occurrence: None)
  Receive Date: 20120523
  Receipt Date: 20120510
  Transmission Date: 20120825
  Serious: No
  Sender: FDA-Public Use
  Company Number: US-JNJFOC-20120511673

PATIENT
  Sex: Female
  Weight: 85.73 kg

DRUGS (1)
  1. FENTANYL-100 [Suspect]
     Indication: PAIN IN EXTREMITY
     Route: 062
     Dates: start: 20120509

REACTIONS (2)
  - THERAPY CESSATION [None]
  - INAPPROPRIATE SCHEDULE OF DRUG ADMINISTRATION [None]
